FAERS Safety Report 5692544-X (Version None)
Quarter: 2008Q2

REPORT INFORMATION
  Report Type: 
  Country: None (occurrence: None)
  Receive Date: 20080402
  Receipt Date: 20080326
  Transmission Date: 20081010
  Serious: No
  Sender: FDA-Public Use
  Company Number: US-BAXTER-2008BH002330

PATIENT
  Age: 37 Year
  Sex: Male
  Weight: 74 kg

DRUGS (3)
  1. HEPARIN SODIUM [Suspect]
     Indication: BLADDER DISORDER
     Dosage: DOSE UNIT:UNKNOWN
     Route: 043
     Dates: start: 20080101
  2. PERCOCET [Concomitant]
     Indication: PAIN
     Dosage: DOSE UNIT:UNKNOWN
     Route: 048
  3. BACLOFEN [Concomitant]
     Indication: BLADDER SPASM
     Route: 048

REACTIONS (1)
  - BLADDER PAIN [None]
